FAERS Safety Report 9502691 (Version 1)
Quarter: 2013Q1

REPORT INFORMATION
  Report Type: Spontaneous
  Country: US (occurrence: None)
  Receive Date: 20130225
  Receipt Date: 20130225
  Transmission Date: 20140127
  Serious: Yes (Hospitalization)
  Sender: FDA-Public Use
  Company Number: 2010-196

PATIENT
  Age: 48 Year
  Sex: Female

DRUGS (2)
  1. PRIALT [Suspect]
  2. BUPIVACAINE HYDROCHLORIDE [Suspect]

REACTIONS (6)
  - Unresponsive to stimuli [None]
  - Lethargy [None]
  - Dizziness [None]
  - Sedation [None]
  - Drug ineffective [None]
  - Pain [None]
